FAERS Safety Report 5059148-3 (Version None)
Quarter: 2006Q3

REPORT INFORMATION
  Report Type: 
  Country: None (occurrence: None)
  Receive Date: 20060718
  Receipt Date: 20060706
  Transmission Date: 20061208
  Serious: Yes (Hospitalization, Other)
  Sender: FDA-Public Use
  Company Number: 234279K06USA

PATIENT
  Age: 59 Year
  Sex: Female
  Weight: 79.8331 kg

DRUGS (6)
  1. REBIF [Suspect]
     Indication: MULTIPLE SCLEROSIS
     Dosage: 44 MCG, 1 IN 1 WEEKS, SUBCUTANEOUS; 44 MCG; 2 IN 1 WEEKS, SUBCUTANEOUS
     Route: 058
     Dates: start: 20050624, end: 20050101
  2. REBIF [Suspect]
     Indication: MULTIPLE SCLEROSIS
     Dosage: 44 MCG, 1 IN 1 WEEKS, SUBCUTANEOUS; 44 MCG; 2 IN 1 WEEKS, SUBCUTANEOUS
     Route: 058
     Dates: start: 20051209
  3. BACLOFEN [Concomitant]
  4. PROTONIX [Concomitant]
  5. CALCIUM (CALCIUM-SANDOZ) [Concomitant]
  6. MULTIVITAMIN (MULTIVITAMIN) [Concomitant]

REACTIONS (3)
  - ANGINA PECTORIS [None]
  - CORONARY ARTERY OCCLUSION [None]
  - HYPERTENSION [None]
